FAERS Safety Report 14144593 (Version 2)
Quarter: 2019Q1

REPORT INFORMATION
  Report Type: Report from Study
  Country: None (occurrence: US)
  Receive Date: 20171031
  Receipt Date: 20190116
  Transmission Date: 20190417
  Serious: Yes (Hospitalization)
  Sender: FDA-Public Use
  Company Number: US-VIFOR (INTERNATIONAL) INC.-VIT-2017-11711

PATIENT
  Age: 78 Year
  Sex: Female

DRUGS (24)
  1. BUMETANIDE. [Concomitant]
     Active Substance: BUMETANIDE
  2. ADVAIR DISKUS [Concomitant]
     Active Substance: FLUTICASONE PROPIONATE\SALMETEROL XINAFOATE
  3. TUZISTRA XR [Concomitant]
     Active Substance: CHLORPHENIRAMINE MALEATE\CODEINE PHOSPHATE ANHYDROUS
  4. AMOXICILLIN AND CLAVULANATE POTASSIUM [Concomitant]
     Active Substance: AMOXICILLIN\CLAVULANATE POTASSIUM
  5. LEVOTHYROXINE. [Concomitant]
     Active Substance: LEVOTHYROXINE
  6. IRBESARTAN. [Concomitant]
     Active Substance: IRBESARTAN
  7. MONTELUKAST [Concomitant]
     Active Substance: MONTELUKAST SODIUM
  8. AMLODIPINE [Concomitant]
     Active Substance: AMLODIPINE BESYLATE
  9. METHYLPREDNISOLONE ACETATE. [Concomitant]
     Active Substance: METHYLPREDNISOLONE ACETATE
  10. VELTASSA [Suspect]
     Active Substance: PATIROMER
     Indication: HYPERKALAEMIA
     Route: 048
     Dates: start: 201704, end: 2017
  11. CLOPIDOGREL [Concomitant]
     Active Substance: CLOPIDOGREL BISULFATE
  12. SYNTHROID [Concomitant]
     Active Substance: LEVOTHYROXINE SODIUM
  13. AZELASTINE. [Concomitant]
     Active Substance: AZELASTINE HYDROCHLORIDE
  14. FLUTICASONE. [Concomitant]
     Active Substance: FLUTICASONE
  15. TRAMADOL HYDROCHLORIDE. [Concomitant]
     Active Substance: TRAMADOL HYDROCHLORIDE
  16. PANTOPRAZOLE [Concomitant]
     Active Substance: PANTOPRAZOLE
  17. VITAMIN D3 [Concomitant]
     Active Substance: CHOLECALCIFEROL
  18. VELTASSA [Suspect]
     Active Substance: PATIROMER
     Route: 048
     Dates: start: 20170518
  19. LOSARTAN POTASSIUM. [Concomitant]
     Active Substance: LOSARTAN POTASSIUM
  20. SPIRONOLACTONE. [Concomitant]
     Active Substance: SPIRONOLACTONE
  21. ATORVASTATIN [Concomitant]
     Active Substance: ATORVASTATIN
  22. OXYCODONE AND ACETAMINOPHEN [Concomitant]
     Active Substance: ACETAMINOPHEN\OXYCODONE HYDROCHLORIDE
  23. DOXYCYCLINE. [Concomitant]
     Active Substance: DOXYCYCLINE
  24. LIOTHYRONINE [Concomitant]
     Active Substance: LIOTHYRONINE

REACTIONS (5)
  - Inappropriate schedule of product administration [Unknown]
  - Staphylococcal infection [Not Recovered/Not Resolved]
  - Spinal cord operation [Recovering/Resolving]
  - Unevaluable event [Not Recovered/Not Resolved]
  - Product dose omission [Not Recovered/Not Resolved]

NARRATIVE: CASE EVENT DATE: 2017
